FAERS Safety Report 21313079 (Version 2)
Quarter: 2022Q4

REPORT INFORMATION
  Report Type: Report from Study
  Country: US (occurrence: None)
  Receive Date: 20220909
  Receipt Date: 20221021
  Transmission Date: 20230112
  Serious: No
  Sender: FDA-Public Use
  Company Number: US-ALM-HQ-US-2022-1900

PATIENT
  Age: 69 Year
  Sex: Male

DRUGS (6)
  1. KLISYRI [Suspect]
     Active Substance: TIRBANIBULIN
     Dates: start: 20220408, end: 20220412
  2. CRESTOR [Concomitant]
     Active Substance: ROSUVASTATIN CALCIUM
     Dates: start: 20090101
  3. PLAVIX [Concomitant]
     Active Substance: CLOPIDOGREL BISULFATE
     Dates: start: 20090101
  4. FAMOTIDINE [Concomitant]
     Active Substance: FAMOTIDINE
     Dates: start: 20150101
  5. SUCRALFATE [Concomitant]
     Active Substance: SUCRALFATE
     Dates: start: 20180101
  6. ACIPHEX [Concomitant]
     Active Substance: RABEPRAZOLE SODIUM
     Dates: start: 20220401

REACTIONS (1)
  - Angioedema [Recovered/Resolved]

NARRATIVE: CASE EVENT DATE: 20220412
